FAERS Safety Report 5952795-3 (Version None)
Quarter: 2008Q4

REPORT INFORMATION
  Report Type: 
  Country: None (occurrence: None)
  Receive Date: 20081114
  Receipt Date: 20081023
  Transmission Date: 20090506
  Serious: Yes (Other)
  Sender: FDA-Public Use
  Company Number: US-JNJFOC-20081006468

PATIENT
  Sex: Female
  Weight: 90.72 kg

DRUGS (8)
  1. DURAGESIC-100 [Suspect]
     Indication: SPINAL COLUMN STENOSIS
     Route: 062
  2. NEURONTIN [Concomitant]
     Indication: NEUROPATHY PERIPHERAL
  3. PARAFON FORTE [Concomitant]
     Indication: MUSCLE SPASMS
     Route: 048
  4. KLOR-CON [Concomitant]
     Indication: BLOOD CALCIUM
     Route: 048
  5. HYDROCHLOROTHIAZIDE [Concomitant]
     Indication: FLUID RETENTION
     Route: 048
  6. RELAFEN [Concomitant]
     Indication: ARTHRITIS
     Route: 048
  7. CYMBALTA [Concomitant]
     Indication: MUSCLE SPASMS
     Route: 048
  8. HYDROCODONE [Concomitant]
     Indication: PAIN
     Dosage: AS NEEDED
     Route: 048

REACTIONS (4)
  - CYST [None]
  - MENOPAUSE [None]
  - SPINAL COLUMN STENOSIS [None]
  - WRONG TECHNIQUE IN DRUG USAGE PROCESS [None]
